FAERS Safety Report 5760157-7 (Version None)
Quarter: 2008Q2

REPORT INFORMATION
  Report Type: 
  Country: None (occurrence: None)
  Receive Date: 20080605
  Receipt Date: 20080530
  Transmission Date: 20081010
  Serious: Yes (Hospitalization)
  Sender: FDA-Public Use
  Company Number: FR-BOEHRINGER INGELHEIM GMBH, GERMANY-2008-FF-00275FF

PATIENT
  Age: 57 Year
  Sex: Female

DRUGS (6)
  1. SPIRIVA [Suspect]
     Route: 055
     Dates: start: 20070101
  2. COMBIVENT [Suspect]
  3. BRONCHODUAL [Suspect]
  4. SERETIDE [Concomitant]
  5. ESTREVA [Concomitant]
  6. PROGESTERONE [Concomitant]

REACTIONS (8)
  - CATARACT [None]
  - CHRONIC SINUSITIS [None]
  - CONSTIPATION [None]
  - DRY MOUTH [None]
  - EPISTAXIS [None]
  - LUNG INFECTION [None]
  - ORAL CANDIDIASIS [None]
  - THROAT IRRITATION [None]
